FAERS Safety Report 22617494 (Version 2)
Quarter: 2024Q3

REPORT INFORMATION
  Report Type: Spontaneous
  Country: RU (occurrence: RU)
  Receive Date: 20230620
  Receipt Date: 20240712
  Transmission Date: 20241017
  Serious: No
  Sender: PIERRE FABRE MEDICAMENT
  Company Number: RU-PFM-2022-04271

PATIENT
  Age: 3 Month
  Sex: Female

DRUGS (2)
  1. PROPRANOLOL [Suspect]
     Active Substance: PROPRANOLOL HYDROCHLORIDE
     Indication: Infantile haemangioma
     Dosage: UNK
     Route: 065
  2. ATENOLOL [Concomitant]
     Active Substance: ATENOLOL
     Indication: Infantile haemangioma
     Dosage: 4 MG/DAY4 MG/DAY (LESS THAN 1 MG/KG/DAY)
     Route: 065

REACTIONS (1)
  - Therapy partial responder [Unknown]
